FAERS Safety Report 24961620 (Version 2)
Quarter: 2025Q2

REPORT INFORMATION
  Report Type: Spontaneous
  Country: GB (occurrence: GB)
  Receive Date: 20250212
  Receipt Date: 20250410
  Transmission Date: 20250717
  Serious: Yes (Congenital Anomaly, Other)
  Sender: SANOFI AVENTIS
  Company Number: None

PATIENT
  Age: 32 Year
  Sex: Female

DRUGS (5)
  1. DOCETAXEL [Suspect]
     Active Substance: DOCETAXEL
     Indication: Breast cancer in situ
     Dosage: 100 MG/M2, Q3W
     Route: 042
     Dates: start: 20241101
  2. EPIRUBICIN [Suspect]
     Active Substance: EPIRUBICIN
     Indication: Breast cancer in situ
     Dosage: 90 MG/M2, Q3W
     Route: 042
     Dates: start: 20240830, end: 20241011
  3. CYCLOPHOSPHAMIDE [Suspect]
     Active Substance: CYCLOPHOSPHAMIDE
     Indication: Breast cancer in situ
     Dosage: 600 MG/M2, Q3W
     Route: 042
     Dates: start: 20240830, end: 20241011
  4. GOSERELIN [Suspect]
     Active Substance: GOSERELIN
     Indication: Breast cancer in situ
     Dosage: 3.6 MG, Q4W
     Route: 058
     Dates: start: 20240920, end: 20250110
  5. ZOLEDRONIC ACID [Suspect]
     Active Substance: ZOLEDRONIC ACID
     Indication: Breast cancer in situ
     Dosage: 4 MG, Q6W
     Route: 042
     Dates: start: 20240920, end: 20241213

REACTIONS (2)
  - Ultrasound foetal abnormal [Unknown]
  - Maternal exposure during pregnancy [Unknown]
